FAERS Safety Report 16597226 (Version 2)
Quarter: 2019Q3

REPORT INFORMATION
  Report Type: Spontaneous
  Country: PT (occurrence: PT)
  Receive Date: 20190719
  Receipt Date: 20190723
  Transmission Date: 20191004
  Serious: Yes (Life-Threatening, Other)
  Sender: FDA-Public Use
  Company Number: PT-ABBVIE-19P-130-2853789-00

PATIENT
  Age: 80 Year
  Sex: Male
  Weight: 60 kg

DRUGS (11)
  1. ROCURONIUM [Interacting]
     Active Substance: ROCURONIUM BROMIDE
     Indication: INDUCTION OF ANAESTHESIA
     Route: 065
  2. PARACETAMOL [Concomitant]
     Active Substance: ACETAMINOPHEN
     Indication: ANALGESIC THERAPY
  3. MIDAZOLAM [Interacting]
     Active Substance: MIDAZOLAM HYDROCHLORIDE
     Indication: PREMEDICATION
     Route: 065
     Dates: start: 20180614, end: 20180614
  4. METAMIZOLE [Concomitant]
     Active Substance: METAMIZOLE
     Indication: ANALGESIC THERAPY
  5. ROCURONIUM [Interacting]
     Active Substance: ROCURONIUM BROMIDE
     Route: 065
  6. SEVOFLURANE. [Suspect]
     Active Substance: SEVOFLURANE
     Indication: MAINTENANCE OF ANAESTHESIA
     Dosage: 1,0-1,2% IN A MIX OF 45% OF O2 AND AIR.
     Route: 055
  7. REMIFENTANIL [Interacting]
     Active Substance: REMIFENTANIL
     Indication: MAINTENANCE OF ANAESTHESIA
     Route: 042
  8. PARECOXIB [Concomitant]
     Active Substance: PARECOXIB
     Indication: ANALGESIC THERAPY
  9. FENTANYL. [Interacting]
     Active Substance: FENTANYL
     Indication: INDUCTION OF ANAESTHESIA
     Route: 065
  10. FENTANYL. [Interacting]
     Active Substance: FENTANYL
     Route: 065
  11. PROPOFOL. [Concomitant]
     Active Substance: PROPOFOL
     Indication: INDUCTION OF ANAESTHESIA
     Route: 065

REACTIONS (2)
  - Neuromuscular block prolonged [Recovered/Resolved]
  - Drug interaction [Recovered/Resolved]
